FAERS Safety Report 14704507 (Version 1)
Quarter: 2018Q2

REPORT INFORMATION
  Report Type: Spontaneous
  Country: HR (occurrence: HR)
  Receive Date: 20180402
  Receipt Date: 20180402
  Transmission Date: 20180711
  Serious: Yes (Death)
  Sender: FDA-Public Use
  Company Number: HR-UNITED THERAPEUTICS-UNT-2018-004409

PATIENT
  Age: 57 Year
  Sex: Male

DRUGS (1)
  1. REMODULIN [Suspect]
     Active Substance: TREPROSTINIL
     Indication: PULMONARY HYPERTENSION
     Dosage: UNK
     Route: 058
     Dates: start: 201801, end: 201803

REACTIONS (1)
  - Cardiopulmonary failure [Fatal]
